FAERS Safety Report 4689697-9 (Version None)
Quarter: 2005Q2

REPORT INFORMATION
  Report Type: 
  Country: None (occurrence: None)
  Receive Date: 20050613
  Receipt Date: 20050613
  Transmission Date: 20051028
  Serious: Yes (Hospitalization)
  Sender: FDA-Public Use
  Company Number: None

PATIENT
  Sex: Male
  Weight: 141.9 kg

DRUGS (10)
  1. GEMCITABINE 100 MG /ML AND 50 MG/ML LILLY AND B.MYERS [Suspect]
     Indication: PANCREATIC CARCINOMA
     Dosage: 1000 /20 MG/M2 DAY 1 AND 15 IV
     Route: 042
     Dates: start: 20050413, end: 20050505
  2. CISPLATIN [Suspect]
  3. BEVACIZUMAB 25 MG/ML GENENTECH [Suspect]
     Indication: PANCREATIC CARCINOMA
     Dosage: 10 MG/KG DAY 1 AND 15 IV
     Route: 042
     Dates: start: 20050413, end: 20050505
  4. METFORMIN HCL [Concomitant]
  5. REGULAR INSULIN [Concomitant]
  6. CARDURA [Concomitant]
  7. LORAZEPAM [Concomitant]
  8. KYTRIL [Concomitant]
  9. PANCREASE [Concomitant]
  10. PROTONIX [Concomitant]

REACTIONS (4)
  - BLOOD CULTURE POSITIVE [None]
  - DEEP VEIN THROMBOSIS [None]
  - HEPATORENAL FAILURE [None]
  - PYREXIA [None]
